FAERS Safety Report 12629474 (Version 4)
Quarter: 2016Q4

REPORT INFORMATION
  Report Type: Spontaneous
  Country: US (occurrence: US)
  Receive Date: 20160808
  Receipt Date: 20161128
  Transmission Date: 20170207
  Serious: Yes (Hospitalization, Other)
  Sender: FDA-Public Use
  Company Number: US-009507513-0903USA01373

PATIENT
  Sex: Female

DRUGS (7)
  1. VITAMIN B (UNSPECIFIED) [Concomitant]
     Indication: PRODUCT USED FOR UNKNOWN INDICATION
     Route: 065
  2. ALENDRONATE SODIUM. [Suspect]
     Active Substance: ALENDRONATE SODIUM
     Indication: OSTEOPOROSIS
     Dosage: 70 MG, QW
  3. FOSAMAX [Suspect]
     Active Substance: ALENDRONATE SODIUM
     Dosage: 10 MG, UNK
     Dates: start: 20001219, end: 200102
  4. ASCORBIC ACID. [Concomitant]
     Active Substance: ASCORBIC ACID
     Indication: PRODUCT USED FOR UNKNOWN INDICATION
     Route: 065
  5. FOSAMAX [Suspect]
     Active Substance: ALENDRONATE SODIUM
     Dosage: 70 MG, QW
     Route: 048
     Dates: start: 20010220, end: 20080609
  6. VITAMIN D [Concomitant]
     Active Substance: CHOLECALCIFEROL
     Indication: PRODUCT USED FOR UNKNOWN INDICATION
     Route: 065
  7. FOSAMAX [Suspect]
     Active Substance: ALENDRONATE SODIUM
     Indication: OSTEOPOROSIS
     Dosage: UNK
     Route: 048
     Dates: start: 19960613

REACTIONS (18)
  - Hypercholesterolaemia [Not Recovered/Not Resolved]
  - Rotator cuff syndrome [Unknown]
  - Pain in extremity [Unknown]
  - Skull fracture [Unknown]
  - Intraductal papilloma of breast [Unknown]
  - Breast disorder [Unknown]
  - Joint effusion [Unknown]
  - Tinnitus [Unknown]
  - Breast hyperplasia [Unknown]
  - Spinal osteoarthritis [Unknown]
  - Femur fracture [Unknown]
  - Breast cellulitis [Unknown]
  - Extradural haematoma [Unknown]
  - Intraductal proliferative breast lesion [Unknown]
  - Femur fracture [Unknown]
  - Cerebral haemorrhage [Unknown]
  - Spinal disorder [Unknown]
  - Sleep disorder [Unknown]

NARRATIVE: CASE EVENT DATE: 2000
